FAERS Safety Report 6815619-8 (Version None)
Quarter: 2010Q3

REPORT INFORMATION
  Report Type: 
  Country: None (occurrence: None)
  Receive Date: 20100702
  Receipt Date: 20100629
  Transmission Date: 20110219
  Serious: Yes (Death)
  Sender: FDA-Public Use
  Company Number: ES-ELI_LILLY_AND_COMPANY-ES201006007542

PATIENT

DRUGS (2)
  1. GEMZAR [Suspect]
     Indication: SMALL CELL LUNG CANCER STAGE UNSPECIFIED
     Dosage: 1250 MG/M2, OTHER (ON DAYS 1 AND 15 EVERY 4 WEEKS)
     Route: 065
  2. PACLITAXEL [Concomitant]
     Indication: SMALL CELL LUNG CANCER STAGE UNSPECIFIED
     Dosage: 80 MG/M2, OTHER (ON DAYS 1 AND 15 EVERY 4 WEEKS)

REACTIONS (1)
  - GASTRIC PERFORATION [None]
